FAERS Safety Report 5272339-1 (Version None)
Quarter: 2007Q1

REPORT INFORMATION
  Report Type: 
  Country: None (occurrence: None)
  Receive Date: 20070322
  Receipt Date: 20070313
  Transmission Date: 20070707
  Serious: Yes (Hospitalization)
  Sender: FDA-Public Use
  Company Number: FR-AVENTIS-200710935FR

PATIENT
  Age: 91 Year
  Sex: Female
  Weight: 87 kg

DRUGS (2)
  1. LOVENOX [Suspect]
     Route: 042
     Dates: start: 20070119, end: 20070205
  2. HEPARINA CHOAY [Suspect]
     Route: 042

REACTIONS (3)
  - CHEST PAIN [None]
  - HYPOXIA [None]
  - THROMBOCYTOPENIA [None]
